FAERS Safety Report 6442751-3 (Version None)
Quarter: 2009Q4

REPORT INFORMATION
  Report Type: 
  Country: None (occurrence: None)
  Receive Date: 20091117
  Receipt Date: 20091104
  Transmission Date: 20100525
  Serious: Yes (Other)
  Sender: FDA-Public Use
  Company Number: PHEH2009US14083

PATIENT
  Sex: Male
  Weight: 100 kg

DRUGS (14)
  1. EXJADE [Suspect]
     Indication: IRON OVERLOAD
     Dosage: 2000 UNK, DAILY
     Route: 048
     Dates: start: 20090826, end: 20091007
  2. EXJADE [Suspect]
     Indication: SERUM FERRITIN INCREASED
  3. ASPIRIN [Concomitant]
     Dosage: 81 MG, UNK
  4. ASCORBIC ACID [Concomitant]
     Dosage: 500 MG, UNK
  5. ATENOLOL [Concomitant]
     Dosage: 50 MG, UNK
  6. LIPITOR [Concomitant]
     Dosage: 40 MG, UNK
  7. CALCIUM WITH VITAMIN D [Concomitant]
  8. PLAVIX [Concomitant]
     Dosage: 75 MG, UNK
  9. FUROSEMIDE [Concomitant]
     Dosage: 40 MG, UNK
  10. GLUCOSAMINE /CHONDROITIN /MSM [Concomitant]
  11. METFORMIN HCL [Concomitant]
  12. M.V.I. [Concomitant]
  13. PREDNISONE [Concomitant]
     Dosage: 5 MG, UNK
  14. TETRACYCLINE [Concomitant]
     Dosage: 500 MG, UNK

REACTIONS (3)
  - BLOOD ALKALINE PHOSPHATASE INCREASED [None]
  - BLOOD CREATININE INCREASED [None]
  - RENAL FAILURE ACUTE [None]
